FAERS Safety Report 20240340 (Version 1)
Quarter: 2021Q4

REPORT INFORMATION
  Report Type: Other
  Country: VN (occurrence: VN)
  Receive Date: 20211228
  Receipt Date: 20211228
  Transmission Date: 20220303
  Serious: Yes (Hospitalization, Other)
  Sender: FDA-Public Use
  Company Number: Genus_Lifesciences-USA_POI05802202100137

PATIENT
  Age: 38 Year
  Sex: Male

DRUGS (1)
  1. ACETAMINOPHEN\HYDROCODONE BITARTRATE [Suspect]
     Active Substance: ACETAMINOPHEN\HYDROCODONE BITARTRATE
     Indication: Diarrhoea infectious
     Route: 042
     Dates: start: 2021, end: 2021

REACTIONS (1)
  - Kounis syndrome [Recovered/Resolved]

NARRATIVE: CASE EVENT DATE: 20210101
